FAERS Safety Report 15858975 (Version 1)
Quarter: 2019Q1

REPORT INFORMATION
  Report Type: Spontaneous
  Country: US (occurrence: US)
  Receive Date: 20190123
  Receipt Date: 20190123
  Transmission Date: 20190417
  Serious: No
  Sender: FDA-Public Use
  Company Number: US-GENERICUS, INC.-2018GNR00005

PATIENT
  Sex: Female

DRUGS (5)
  1. VITAMIN B12 [Concomitant]
     Active Substance: CYANOCOBALAMIN
  2. VITAMIN D3 [Concomitant]
     Active Substance: CHOLECALCIFEROL
  3. TURMERIC [Concomitant]
     Active Substance: HERBALS\TURMERIC
  4. TOBRAMYCIN. [Suspect]
     Active Substance: TOBRAMYCIN
     Indication: CYSTIC FIBROSIS
     Dosage: 300 MG, 2X/DAY
     Dates: start: 20180411
  5. GINGER ROOT [Concomitant]
     Active Substance: GINGER

REACTIONS (1)
  - Cough [Unknown]

NARRATIVE: CASE EVENT DATE: 2018
